FAERS Safety Report 7963399-5 (Version None)
Quarter: 2011Q4

REPORT INFORMATION
  Report Type: 
  Country: None (occurrence: None)
  Receive Date: 20111122
  Receipt Date: 20110804
  Transmission Date: 20120403
  Serious: No
  Sender: FDA-Public Use
  Company Number: PHHY2011US68653

PATIENT
  Age: 58 Year
  Sex: Female

DRUGS (7)
  1. PREDNISONE TAB [Concomitant]
  2. CYMBALTA [Concomitant]
  3. LISINOPRIL [Concomitant]
  4. PROVIGIL [Concomitant]
  5. GILENYA [Suspect]
     Indication: RELAPSING-REMITTING MULTIPLE SCLEROSIS
     Dosage: 0.5 MG, QD, ORAL
     Route: 048
     Dates: start: 20110401, end: 20110729
  6. LEVOTHYROXINE SODIUM [Concomitant]
  7. VALTREX [Concomitant]

REACTIONS (3)
  - FORMICATION [None]
  - BURNING SENSATION [None]
  - MALAISE [None]
